FAERS Safety Report 4485384-0 (Version None)
Quarter: 2004Q4

REPORT INFORMATION
  Report Type: 
  Country: None (occurrence: None)
  Receive Date: 20041025
  Receipt Date: 20041025
  Transmission Date: 20050328
  Serious: No
  Sender: FDA-Public Use
  Company Number: None

PATIENT
  Age: 46 Year
  Sex: Female
  Weight: 61.2356 kg

DRUGS (1)
  1. VIOXX [Suspect]
     Indication: ARTHRITIS
     Dosage: 1  ONCE A DAY  ORAL
     Route: 048
     Dates: start: 20000101, end: 20040101

REACTIONS (4)
  - GASTRIC ULCER [None]
  - HAEMATOCHEZIA [None]
  - HELICOBACTER INFECTION [None]
  - POLYP [None]
